FAERS Safety Report 10174300 (Version 1)
Quarter: 2014Q2

REPORT INFORMATION
  Report Type: Spontaneous
  Country: US (occurrence: US)
  Receive Date: 20140515
  Receipt Date: 20140515
  Transmission Date: 20141212
  Serious: Yes (Hospitalization)
  Sender: FDA-Public Use
  Company Number: US-B.I. PHARMACEUTICALS,INC./RIDGEFIELD-2014-BI-21028BP

PATIENT
  Age: 76 Year
  Sex: Female
  Weight: 75 kg

DRUGS (12)
  1. PRADAXA [Suspect]
     Indication: ATRIAL FIBRILLATION
     Dosage: 300 MG
     Route: 048
     Dates: start: 2012
  2. ASPIRIN [Concomitant]
     Dosage: 325 MG
     Route: 048
  3. METFORMIN [Concomitant]
     Indication: DIABETES MELLITUS
     Dosage: 2000 MG
     Route: 048
  4. DILTIAZEM CD [Concomitant]
     Indication: ATRIAL FIBRILLATION
     Dosage: 180 MG
     Route: 048
  5. ONGLYZA [Concomitant]
     Indication: DIABETES MELLITUS
     Dosage: 2.5 MG
     Route: 048
  6. PROPAFENONE [Concomitant]
     Indication: ATRIAL FIBRILLATION
     Dosage: 450 MG
     Route: 048
  7. DIGOXIN [Concomitant]
     Indication: ATRIAL FIBRILLATION
     Dosage: 25 MCG
     Route: 048
  8. SIMVASTATIN [Concomitant]
     Dosage: 20 MG
     Route: 048
  9. PAROXITIENE [Concomitant]
     Indication: ANXIETY
     Dosage: 20 MG
     Route: 048
  10. CALCIUM [Concomitant]
     Dosage: 1200 MG
     Route: 048
  11. MULTIVITAMIN [Concomitant]
     Route: 048
  12. TRAVATAN [Concomitant]
     Indication: GLAUCOMA
     Dosage: STRENGTH AND DAILY DOSE: ONE DROP IN BOTH EYES
     Route: 065

REACTIONS (5)
  - Cerebrovascular accident [Recovered/Resolved]
  - Urinary tract infection [Recovered/Resolved]
  - Blood glucose increased [Recovered/Resolved]
  - Amnesia [Not Recovered/Not Resolved]
  - Dysarthria [Recovered/Resolved]
